FAERS Safety Report 6712649-1 (Version None)
Quarter: 2010Q2

REPORT INFORMATION
  Report Type: 
  Country: None (occurrence: None)
  Receive Date: 20100505
  Receipt Date: 20100505
  Transmission Date: 20101027
  Serious: Yes (Hospitalization)
  Sender: FDA-Public Use
  Company Number: None

PATIENT
  Age: 62 Year
  Sex: Male
  Weight: 83 kg

DRUGS (9)
  1. DIGOXIN [Suspect]
     Dosage: 0.125 MG DAILY ORAL PRIOR TO ADMISSION
     Route: 048
  2. MULTAQ [Suspect]
     Dosage: TWICE A DAY ORAL
     Route: 048
  3. PLAVIX [Concomitant]
  4. ASPIRIN [Concomitant]
  5. SYNTHROID [Concomitant]
  6. ATENOLOL [Concomitant]
  7. ALLOPURINOL [Concomitant]
  8. FLOMAX [Concomitant]
  9. ZANTAC [Concomitant]

REACTIONS (2)
  - CARDIOACTIVE DRUG LEVEL INCREASED [None]
  - HEART RATE DECREASED [None]
